FAERS Safety Report 10950089 (Version 2)
Quarter: 2015Q2

REPORT INFORMATION
  Report Type: Report from Study
  Country: US (occurrence: US)
  Receive Date: 20150324
  Receipt Date: 20150625
  Transmission Date: 20150821
  Serious: No
  Sender: FDA-Public Use
  Company Number: US-EXELIXIS-CABO-15005136

PATIENT
  Age: 51 Year
  Sex: Male

DRUGS (2)
  1. CABOZANTINIB [Suspect]
     Active Substance: CABOZANTINIB
     Dosage: 60 MG, QD
     Route: 048
     Dates: start: 20150118
  2. CABOZANTINIB [Suspect]
     Active Substance: CABOZANTINIB
     Indication: MALIGNANT NEOPLASM OF EYE
     Dosage: 60 MG, QD
     Route: 048
     Dates: start: 20141210, end: 20150114

REACTIONS (4)
  - Skin sensitisation [Unknown]
  - Off label use [Unknown]
  - Skin disorder [Unknown]
  - Abdominal distension [Unknown]

NARRATIVE: CASE EVENT DATE: 20141210
